FAERS Safety Report 4726493-8 (Version None)
Quarter: 2005Q3

REPORT INFORMATION
  Report Type: 
  Country: None (occurrence: None)
  Receive Date: 20050726
  Receipt Date: 20050712
  Transmission Date: 20060218
  Serious: Yes (Death)
  Sender: FDA-Public Use
  Company Number: 2005-BP-11844RO

PATIENT
  Age: 58 Year
  Sex: Female

DRUGS (6)
  1. DEXAMETHASONE [Suspect]
     Indication: PROPHYLAXIS OF NAUSEA AND VOMITING
     Dosage: 8 MG (4 MG, 2 IN 1 D), NR
  2. DOCETAXEL (DOCETAXEL) [Suspect]
     Indication: GASTRIC CANCER
     Dosage: SEE TEXT (NR), IV
     Route: 042
  3. CISPLATIN [Suspect]
     Indication: GASTRIC CANCER
     Dosage: SEE TEXT (NR); IV
     Route: 042
  4. FLUOROURACIL [Suspect]
     Indication: GASTRIC CANCER
     Dosage: SEE TEXT (SEE TEXT)
  5. OXALIPLATIN (OXALIPLATIN) [Suspect]
     Indication: GASTRIC CANCER
     Dosage: NR
  6. IRINOTECAN (IRINOTECAN) [Suspect]
     Indication: GASTRIC CANCER
     Dosage: NR

REACTIONS (7)
  - ABDOMINAL PAIN [None]
  - ASTHENIA [None]
  - DISEASE PROGRESSION [None]
  - LARGE INTESTINE PERFORATION [None]
  - NAUSEA [None]
  - PERITONITIS [None]
  - WHITE BLOOD CELL COUNT INCREASED [None]
